FAERS Safety Report 15299671 (Version 2)
Quarter: 2018Q3

REPORT INFORMATION
  Report Type: Spontaneous
  Country: US (occurrence: US)
  Receive Date: 20180821
  Receipt Date: 20180827
  Transmission Date: 20181010
  Serious: Yes (Hospitalization, Other)
  Sender: FDA-Public Use
  Company Number: US-DRREDDYS-USA/USA/18/0103073

PATIENT
  Age: 71 Year
  Sex: Male

DRUGS (3)
  1. CARBIDOPA 25 MG, LEVODOPA 100 MG ? TABLET [Concomitant]
     Indication: PARKINSON^S DISEASE
  2. ROPINIROLE. [Suspect]
     Active Substance: ROPINIROLE
     Indication: PARKINSON^S DISEASE
     Dosage: TAKING HIS DRT MORE FREQUENTLY THAN PRESCRIBED
     Route: 065
  3. CARBIDOPA 25 MG, LEVODOPA 100 MG ? TABLET [Concomitant]
     Indication: PARKINSON^S DISEASE
     Route: 065

REACTIONS (2)
  - Drug abuse [Unknown]
  - Dopamine dysregulation syndrome [Unknown]
